FAERS Safety Report 7423725 (Version 2)
Quarter: 2013Q2

REPORT INFORMATION
  Report Type: Spontaneous
  Country: DK (occurrence: DK)
  Receive Date: 20100617
  Receipt Date: 20130605
  Transmission Date: 20140414
  Serious: Yes (Hospitalization)
  Sender: FDA-Public Use
  Company Number: GXKR2010DK06127

PATIENT
  Age: 57 Year
  Sex: Male

DRUGS (4)
  1. LAMOTRIGINE [Suspect]
  2. EFFEXOR [Suspect]
     Route: 048
  3. SEROQUEL [Suspect]
     Route: 048
  4. ANTABUSE [Suspect]
     Route: 048

REACTIONS (2)
  - Ileus paralytic [Recovered/Resolved]
  - Constipation [Recovered/Resolved]
